FAERS Safety Report 11047047 (Version 1)
Quarter: 2015Q2

REPORT INFORMATION
  Report Type: Spontaneous
  Country: US (occurrence: US)
  Receive Date: 20150420
  Receipt Date: 20150420
  Transmission Date: 20150821
  Serious: No
  Sender: FDA-Public Use
  Company Number: US-TEVA-555653ACC

PATIENT
  Age: 16 Year
  Sex: Female
  Weight: 59.93 kg

DRUGS (1)
  1. PLAN B ONE-STEP [Suspect]
     Active Substance: LEVONORGESTREL
     Indication: POST COITAL CONTRACEPTION
     Route: 048
     Dates: start: 20150410, end: 20150410

REACTIONS (8)
  - Oropharyngeal pain [Not Recovered/Not Resolved]
  - Headache [Recovered/Resolved]
  - Pain [Unknown]
  - Discomfort [Unknown]
  - Chest pain [Not Recovered/Not Resolved]
  - Nausea [Recovered/Resolved]
  - Abdominal pain [Recovered/Resolved]
  - Fatigue [Recovered/Resolved]

NARRATIVE: CASE EVENT DATE: 20140411
